FAERS Safety Report 5636776-5 (Version None)
Quarter: 2008Q1

REPORT INFORMATION
  Report Type: 
  Country: None (occurrence: None)
  Receive Date: 20080219
  Receipt Date: 20080219
  Transmission Date: 20080703
  Serious: No
  Sender: FDA-Public Use
  Company Number: None

PATIENT
  Age: 61 Year
  Sex: Male

DRUGS (1)
  1. VENLAFAXINE HCL [Suspect]
     Dosage: 375MG EVERY DAY PO
     Route: 048
     Dates: start: 20070817, end: 20071012

REACTIONS (1)
  - SEROTONIN SYNDROME [None]
